FAERS Safety Report 8253637-6 (Version None)
Quarter: 2012Q2

REPORT INFORMATION
  Report Type: 
  Country: None (occurrence: None)
  Receive Date: 20120402
  Receipt Date: 20120308
  Transmission Date: 20120825
  Serious: No
  Sender: FDA-Public Use
  Company Number: US-AMGEN-USASP2012015849

PATIENT
  Age: 56 Year

DRUGS (3)
  1. CECLOR [Suspect]
     Dosage: UNK
  2. CONTRAST MEDIA [Suspect]
     Dosage: UNK
     Route: 042
  3. ENBREL [Suspect]
     Indication: PRODUCT USED FOR UNKNOWN INDICATION
     Dosage: UNK

REACTIONS (1)
  - DRUG HYPERSENSITIVITY [None]
